FAERS Safety Report 9606230 (Version 1)
Quarter: 2013Q4

REPORT INFORMATION
  Report Type: Spontaneous
  Country: US (occurrence: US)
  Receive Date: 20131008
  Receipt Date: 20131008
  Transmission Date: 20140711
  Serious: No
  Sender: FDA-Public Use
  Company Number: US-AMGEN-USASP2013046792

PATIENT
  Age: 60 Year
  Sex: Female

DRUGS (3)
  1. PROLIA [Suspect]
     Indication: OSTEOPOROSIS
     Dosage: UNK
     Dates: start: 201206
  2. CALTRATE                           /00944201/ [Concomitant]
  3. MULTIVITAMIN                       /07504101/ [Concomitant]

REACTIONS (2)
  - Blood calcium abnormal [Unknown]
  - Blood parathyroid hormone increased [Unknown]
